FAERS Safety Report 23070124 (Version 2)
Quarter: 2023Q4

REPORT INFORMATION
  Report Type: Spontaneous
  Country: BM (occurrence: BM)
  Receive Date: 20231016
  Receipt Date: 20231019
  Transmission Date: 20240110
  Serious: Yes (Hospitalization)
  Sender: FDA-Public Use
  Company Number: BM-PFIZER INC-202300321136

PATIENT
  Age: 45 Year
  Sex: Female

DRUGS (1)
  1. LORBRENA [Suspect]
     Active Substance: LORLATINIB
     Dosage: UNK

REACTIONS (1)
  - Cerebral haemorrhage [Unknown]

NARRATIVE: CASE EVENT DATE: 20231006
